FAERS Safety Report 14954623 (Version 1)
Quarter: 2018Q2

REPORT INFORMATION
  Report Type: Spontaneous
  Country: US (occurrence: US)
  Receive Date: 20180530
  Receipt Date: 20180530
  Transmission Date: 20180711
  Serious: Yes (Hospitalization, Other)
  Sender: FDA-Public Use
  Company Number: US-GLAXOSMITHKLINE-US2018093517

PATIENT
  Sex: Female

DRUGS (18)
  1. LOMOTIL TABLET (ATROPINE SULPHATE + DIPHENOXYLATE HYDROCHLORIDE) [Concomitant]
  2. ZOFRAN [Concomitant]
     Active Substance: ONDANSETRON HYDROCHLORIDE
  3. CLONAZEPAM. [Concomitant]
     Active Substance: CLONAZEPAM
  4. MAGNESIUM [Concomitant]
     Active Substance: MAGNESIUM
  5. NUCALA [Suspect]
     Active Substance: MEPOLIZUMAB
     Indication: ASTHMA
     Dosage: UNK UNK, U
     Dates: start: 2016
  6. ADVAIR HFA [Suspect]
     Active Substance: FLUTICASONE PROPIONATE\SALMETEROL XINAFOATE
     Indication: ASTHMA
     Dosage: UNK UNK, U
  7. VENTOLIN HFA [Suspect]
     Active Substance: ALBUTEROL SULFATE
     Indication: PRODUCT USED FOR UNKNOWN INDICATION
     Dosage: 2 PUFF(S), TID
  8. KLOR-CON [Concomitant]
     Active Substance: POTASSIUM CHLORIDE
  9. CROMOLYN SODIUM AEROSOL [Concomitant]
  10. CARAFATE [Concomitant]
     Active Substance: SUCRALFATE
  11. PANTOPRAZOLE [Concomitant]
     Active Substance: PANTOPRAZOLE
  12. HYDROCORTISONE. [Concomitant]
     Active Substance: HYDROCORTISONE
  13. LEVALBUTEROL TARTRATE. [Concomitant]
     Active Substance: LEVALBUTEROL TARTRATE
  14. PREDNISONE. [Suspect]
     Active Substance: PREDNISONE
     Indication: ASTHMA
  15. PREDNISONE. [Suspect]
     Active Substance: PREDNISONE
     Indication: BRONCHITIS
     Dosage: UNK UNK, U
  16. OXYCONTIN [Concomitant]
     Active Substance: OXYCODONE HYDROCHLORIDE
  17. ZYRTEC [Concomitant]
     Active Substance: CETIRIZINE HYDROCHLORIDE
  18. TIZANIDINE. [Concomitant]
     Active Substance: TIZANIDINE

REACTIONS (6)
  - Pneumonia pneumococcal [Unknown]
  - Drug ineffective [Recovering/Resolving]
  - Bronchitis [Recovering/Resolving]
  - Packaging design issue [Unknown]
  - Seasonal allergy [Unknown]
  - Candida infection [Recovering/Resolving]
